FAERS Safety Report 9161271 (Version 1)
Quarter: 2013Q1

REPORT INFORMATION
  Report Type: Report from Study
  Country: US (occurrence: US)
  Receive Date: 20130313
  Receipt Date: 20130313
  Transmission Date: 20140127
  Serious: No
  Sender: FDA-Public Use
  Company Number: US-009507513-1303USA004026

PATIENT
  Sex: Female

DRUGS (6)
  1. VICTRELIS [Suspect]
     Indication: PRODUCT USED FOR UNKNOWN INDICATION
     Dosage: 4 DF, QM EVERY 8 HOURS
  2. RIBAVIRIN [Suspect]
     Indication: PRODUCT USED FOR UNKNOWN INDICATION
     Dosage: 200 MG, UNK
  3. PEGINTERFERON ALFA-2A [Suspect]
     Indication: PRODUCT USED FOR UNKNOWN INDICATION
     Dosage: 180 UNK, UNK
  4. ZOLPIDEM TARTRATE [Concomitant]
  5. GABAPENTIN [Concomitant]
  6. VALIUM [Concomitant]

REACTIONS (3)
  - Headache [Unknown]
  - Dysgeusia [Unknown]
  - Overdose [Unknown]
